FAERS Safety Report 19309393 (Version 10)
Quarter: 2021Q4

REPORT INFORMATION
  Report Type: Report from Study
  Country: BR (occurrence: BR)
  Receive Date: 20210526
  Receipt Date: 20211013
  Transmission Date: 20220303
  Serious: Yes (Death, Hospitalization)
  Sender: FDA-Public Use
  Company Number: BR-ROCHE-2831369

PATIENT
  Age: 49 Year
  Sex: Female
  Weight: 60.9 kg

DRUGS (25)
  1. INVESTIGATIONAL PRODUCT [Suspect]
     Active Substance: INVESTIGATIONAL PRODUCT
     Indication: Neoplasm
     Dosage: DATE OF MOST RECENT DOSE 250 MG OF STUDY DRUG PRIOR TO AE/SAE: 10/MAY/2021 AT 3:40 PM (END TIME: 5:0
     Route: 041
     Dates: start: 20210510
  2. ATEZOLIZUMAB [Suspect]
     Active Substance: ATEZOLIZUMAB
     Indication: Neoplasm
     Dosage: DATE OF MOST RECENT DOSE 1200 MG OF STUDY DRUG PRIOR TO AE/SAE: 10/MAY/2021 AT 12:55 PM (END TIME: 1
     Route: 041
     Dates: start: 20210510
  3. ZOLPIDEM TARTRATE [Concomitant]
     Active Substance: ZOLPIDEM TARTRATE
     Indication: Insomnia
     Dates: start: 2017
  4. LEVOTHYROXINE [Concomitant]
     Active Substance: LEVOTHYROXINE
     Indication: Hypothyroidism
     Dates: start: 201910
  5. METOCLOPRAMIDE [Concomitant]
     Active Substance: METOCLOPRAMIDE
     Indication: Nausea
     Dates: start: 20210511
  6. METOCLOPRAMIDE [Concomitant]
     Active Substance: METOCLOPRAMIDE
     Dates: start: 20210621, end: 20210624
  7. METOCLOPRAMIDE [Concomitant]
     Active Substance: METOCLOPRAMIDE
     Dates: start: 20210624, end: 20210727
  8. DIPYRONE [Concomitant]
     Active Substance: DIPYRONE
     Indication: Abdominal distension
     Dates: start: 20210513, end: 20210526
  9. DIPYRONE [Concomitant]
     Active Substance: DIPYRONE
     Dates: start: 20210526
  10. DIMETHICONE [Concomitant]
     Active Substance: DIMETHICONE
     Indication: Abdominal distension
     Dates: start: 20210515
  11. MORPHINE [Concomitant]
     Active Substance: MORPHINE
     Indication: Abdominal distension
     Dates: start: 20210515, end: 20210516
  12. MORPHINE [Concomitant]
     Active Substance: MORPHINE
     Dates: start: 20210517, end: 20210524
  13. MORPHINE [Concomitant]
     Active Substance: MORPHINE
     Dates: start: 20210525, end: 20210608
  14. MORPHINE [Concomitant]
     Active Substance: MORPHINE
     Dates: start: 20210608
  15. SPIRONOLACTONE [Concomitant]
     Active Substance: SPIRONOLACTONE
     Indication: Fatigue
     Dates: start: 20210521
  16. FUROSEMIDE [Concomitant]
     Active Substance: FUROSEMIDE
     Indication: Fatigue
     Dates: start: 20210521
  17. DIMENHYDRINATE [Concomitant]
     Active Substance: DIMENHYDRINATE
     Indication: Nausea
     Dates: start: 20210521, end: 20210524
  18. DIMENHYDRINATE [Concomitant]
     Active Substance: DIMENHYDRINATE
     Dates: start: 20210525
  19. ONDANSETRON [Concomitant]
     Active Substance: ONDANSETRON
     Indication: Nausea
     Dates: start: 20210524, end: 20210524
  20. ONDANSETRON [Concomitant]
     Active Substance: ONDANSETRON
     Dates: start: 20210525
  21. BISACODYL [Concomitant]
     Active Substance: BISACODYL
     Indication: Constipation
     Dates: start: 20210522
  22. GLYCERINE ENEMA [Concomitant]
     Indication: Constipation
     Dates: start: 20210521, end: 20210526
  23. SCOPOLAMINE [Concomitant]
     Active Substance: SCOPOLAMINE
     Dates: start: 20210519
  24. ENOXAPARIN [Concomitant]
     Active Substance: ENOXAPARIN
     Indication: Deep vein thrombosis
     Dates: start: 20210515
  25. ALBENDAZOLE [Concomitant]
     Active Substance: ALBENDAZOLE
     Dates: start: 20210516, end: 20210518

REACTIONS (1)
  - Aspartate aminotransferase increased [Not Recovered/Not Resolved]

NARRATIVE: CASE EVENT DATE: 20210513
